FAERS Safety Report 7083983-3 (Version None)
Quarter: 2010Q4

REPORT INFORMATION
  Report Type: 
  Country: None (occurrence: None)
  Receive Date: 20101104
  Receipt Date: 20100420
  Transmission Date: 20110411
  Serious: No
  Sender: FDA-Public Use
  Company Number: US-ABBOTT-10P-163-0640865-00

PATIENT
  Sex: Male

DRUGS (6)
  1. KALETRA [Suspect]
     Indication: HIV INFECTION
     Route: 048
     Dates: start: 20080101
  2. OMEPRAZOLE [Concomitant]
     Indication: GASTROOESOPHAGEAL REFLUX DISEASE
     Route: 048
  3. FEXOFENADINE HCL [Concomitant]
     Indication: HYPERSENSITIVITY
  4. PRAVASTATIN [Concomitant]
     Indication: BLOOD CHOLESTEROL INCREASED
  5. TRUVADA [Concomitant]
     Indication: HIV INFECTION
  6. AMBIEN [Concomitant]
     Indication: INSOMNIA

REACTIONS (1)
  - ABNORMAL BEHAVIOUR [None]
